FAERS Safety Report 7370839-1 (Version None)
Quarter: 2011Q1

REPORT INFORMATION
  Report Type: 
  Country: None (occurrence: None)
  Receive Date: 20110324
  Receipt Date: 20110315
  Transmission Date: 20110831
  Serious: No
  Sender: FDA-Public Use
  Company Number: US-BIOGENIDEC-2010BI041098

PATIENT
  Age: 32 Year
  Sex: Female

DRUGS (3)
  1. TYSABRI [Suspect]
     Indication: MULTIPLE SCLEROSIS
     Route: 042
     Dates: start: 20101117
  2. AMBIEN [Concomitant]
     Indication: INSOMNIA
  3. SOLU-MEDROL [Concomitant]
     Indication: PRODUCT USED FOR UNKNOWN INDICATION
     Dates: start: 20101201, end: 20101201

REACTIONS (19)
  - MUSCULOSKELETAL STIFFNESS [None]
  - EAR PAIN [None]
  - NECK PAIN [None]
  - MOVEMENT DISORDER [None]
  - FATIGUE [None]
  - MIGRAINE [None]
  - PAIN [None]
  - BLOOD POTASSIUM DECREASED [None]
  - MUSCLE SPASMS [None]
  - UPPER RESPIRATORY TRACT INFECTION [None]
  - HEART RATE INCREASED [None]
  - BACK PAIN [None]
  - MULTIPLE SCLEROSIS RELAPSE [None]
  - NEURALGIA [None]
  - ARTHRALGIA [None]
  - CHEST PAIN [None]
  - MUSCULOSKELETAL CHEST PAIN [None]
  - VISUAL IMPAIRMENT [None]
  - HEADACHE [None]
